FAERS Safety Report 6463853-1 (Version None)
Quarter: 2009Q4

REPORT INFORMATION
  Report Type: 
  Country: None (occurrence: None)
  Receive Date: 20091130
  Receipt Date: 20091130
  Transmission Date: 20100525
  Serious: Yes (Hospitalization)
  Sender: FDA-Public Use
  Company Number: None

PATIENT
  Sex: Male
  Weight: 85 kg

DRUGS (8)
  1. DASATINIB [Suspect]
     Indication: NEOPLASM MALIGNANT
     Dosage: 70 MG DAILY PO
     Route: 048
     Dates: start: 20091118, end: 20091123
  2. PLAVIX [Concomitant]
  3. LOVENOX [Concomitant]
  4. OXYCODONE HCL [Concomitant]
  5. LIPITOR [Concomitant]
  6. BENICAR/HYDROCHLOROTHIAZIDE [Concomitant]
  7. FLOMAX [Concomitant]
  8. METOPROLOL TARTRATE [Concomitant]

REACTIONS (1)
  - CEREBROVASCULAR ACCIDENT [None]
